FAERS Safety Report 14021946 (Version 1)
Quarter: 2017Q3

REPORT INFORMATION
  Report Type: Spontaneous
  Country: US (occurrence: US)
  Receive Date: 20170928
  Receipt Date: 20170928
  Transmission Date: 20171128
  Serious: Yes (Life-Threatening)
  Sender: FDA-Public Use
  Company Number: None

PATIENT
  Sex: Female

DRUGS (3)
  1. ANTI SEIZURE MEDS [Concomitant]
  2. DEPAKOTE [Concomitant]
     Active Substance: DIVALPROEX SODIUM
  3. LYRICA [Suspect]
     Active Substance: PREGABALIN
     Indication: NEUROPATHY PERIPHERAL
     Dates: start: 20140915, end: 20140928

REACTIONS (5)
  - Muscle disorder [None]
  - Feeling abnormal [None]
  - Dyspnoea [None]
  - Speech disorder [None]
  - Throat tightness [None]

NARRATIVE: CASE EVENT DATE: 20140928
